FAERS Safety Report 11290523 (Version 6)
Quarter: 2025Q4

REPORT INFORMATION
  Report Type: Report from Study
  Country: JP (occurrence: JP)
  Receive Date: 20150722
  Receipt Date: 20251222
  Transmission Date: 20260118
  Serious: Yes (Hospitalization, Other)
  Sender: ALEXION PHARMACEUTICALS
  Company Number: JP-ALEXION-A201501368

PATIENT
  Age: 39 Year
  Sex: Male
  Weight: 73 kg

DRUGS (10)
  1. SOLIRIS [Suspect]
     Active Substance: ECULIZUMAB
     Indication: Paroxysmal nocturnal haemoglobinuria
     Dosage: 600 MILLIGRAM, QW
     Dates: start: 20130710, end: 20131031
  2. SOLIRIS [Suspect]
     Active Substance: ECULIZUMAB
     Dosage: 900 MILLIGRAM, Q2W
     Dates: start: 20130807
  3. SOLIRIS [Suspect]
     Active Substance: ECULIZUMAB
     Dosage: 900 MILLIGRAM, Q2W
     Dates: start: 20131107
  4. FOLIC ACID [Concomitant]
     Active Substance: FOLIC ACID
     Indication: Paroxysmal nocturnal haemoglobinuria
     Dosage: 15 MILLIGRAM, QD
     Route: 065
     Dates: start: 20140210
  5. METHYLCOBALAMIN [Concomitant]
     Active Substance: METHYLCOBALAMIN
     Indication: Paroxysmal nocturnal haemoglobinuria
     Dosage: 1500 MILLIGRAM, QD
     Route: 065
     Dates: start: 20140210
  6. FEBUXOSTAT [Concomitant]
     Active Substance: FEBUXOSTAT
     Indication: Paroxysmal nocturnal haemoglobinuria
     Dosage: 10 MILLIGRAM, QD
     Route: 065
     Dates: start: 20140707
  7. URSO [Concomitant]
     Active Substance: URSODIOL
     Dosage: 300 MILLIGRAM, QD
     Route: 065
     Dates: start: 20140707
  8. PREDNISOLONE [Concomitant]
     Active Substance: PREDNISOLONE
     Indication: Paroxysmal nocturnal haemoglobinuria
     Dosage: 3 MILLIGRAM, QD
     Route: 065
     Dates: end: 20140421
  9. METHENOLONE [Concomitant]
     Active Substance: METHENOLONE
     Indication: Paroxysmal nocturnal haemoglobinuria
     Dosage: 5 MILLIGRAM, QD
     Route: 065
     Dates: end: 20140421
  10. ALLOPURINOL [Concomitant]
     Active Substance: ALLOPURINOL
     Indication: Paroxysmal nocturnal haemoglobinuria
     Dosage: 100 MILLIGRAM, QD
     Route: 065
     Dates: end: 20140706

REACTIONS (6)
  - Extravascular haemolysis [Recovered/Resolved]
  - Acute sinusitis [Recovered/Resolved]
  - Haemolysis [Recovered/Resolved]
  - Drug ineffective [Unknown]
  - Hepatic function abnormal [Not Recovered/Not Resolved]
  - Nasopharyngitis [Recovered/Resolved]

NARRATIVE: CASE EVENT DATE: 20140413
